FAERS Safety Report 6479679-9 (Version None)
Quarter: 2009Q4

REPORT INFORMATION
  Report Type: 
  Country: None (occurrence: None)
  Receive Date: 20091208
  Receipt Date: 20091201
  Transmission Date: 20100525
  Serious: Yes (Other)
  Sender: FDA-Public Use
  Company Number: US-BAYER-200939373NA

PATIENT
  Age: 49 Year
  Sex: Female
  Weight: 73 kg

DRUGS (4)
  1. AVELOX [Suspect]
     Indication: BRONCHITIS
     Dates: start: 20071019
  2. FLU SHOT [Suspect]
     Indication: DRUG USE FOR UNKNOWN INDICATION
     Dates: start: 20080101
  3. LEVOTHYROXINE SODIUM [Concomitant]
  4. PREMARIN [Concomitant]

REACTIONS (2)
  - ANAPHYLACTIC REACTION [None]
  - FLUSHING [None]
